FAERS Safety Report 15887802 (Version 2)
Quarter: 2019Q2

REPORT INFORMATION
  Report Type: Report from Study
  Country: DE (occurrence: DE)
  Receive Date: 20190130
  Receipt Date: 20190403
  Transmission Date: 20190711
  Serious: Yes (Other)
  Sender: FDA-Public Use
  Company Number: DE-ACCORD-103799

PATIENT
  Age: 59 Year
  Sex: Male
  Weight: 70 kg

DRUGS (21)
  1. LEVOTHYROXINE. [Concomitant]
     Active Substance: LEVOTHYROXINE
     Indication: HYPOTHYROIDISM
     Dosage: 75 MUG/KG, QD
     Route: 048
     Dates: start: 201802
  2. ENALAPRIL-RATIOPHARM [Concomitant]
     Active Substance: ENALAPRIL
     Indication: HYPERTENSION
     Dosage: 20 MG, QD
     Route: 048
     Dates: start: 201802
  3. NOVAMINSULFON-RATIOPHARM [Concomitant]
     Active Substance: METAMIZOLE
     Indication: GOUT
     Dosage: 500 MG, QID
     Route: 048
     Dates: start: 201802
  4. FLUOROURACIL. [Suspect]
     Active Substance: FLUOROURACIL
     Indication: COLORECTAL CANCER METASTATIC
     Dosage: 730 MG, UNK, 1100 MG, UNK, 130 MG, UNK
     Route: 040
     Dates: start: 20180314
  5. BAYOTENSIN [Concomitant]
     Active Substance: NITRENDIPINE
     Indication: HYPERTENSION
     Dosage: 5 MG, AS NECESSARY
     Route: 048
     Dates: start: 201802
  6. PANITUMUMAB SOLUTION FOR INJECTION [Suspect]
     Active Substance: PANITUMUMAB
     Indication: COLORECTAL CANCER METASTATIC
     Dosage: 424 MG, UNK
     Route: 042
     Dates: start: 20180404
  7. PANTOPRAZOL RATIOPHARM [Concomitant]
     Active Substance: PANTOPRAZOLE SODIUM
     Indication: PROPHYLAXIS
     Dosage: 40 MG, QD
     Route: 048
     Dates: start: 201802
  8. MOXONIDIN-RATIOPHARM [Concomitant]
     Indication: HYPERTENSION
     Dosage: 0.3 MG, BID
     Route: 048
     Dates: start: 201802
  9. VITAMIN B1 AND B6 [Concomitant]
     Active Substance: PYRIDOXINE HYDROCHLORIDE\THIAMINE HYDROCHLORIDE
     Indication: PROPHYLAXIS
     Dosage: 999 UNK, QD
     Route: 048
     Dates: start: 201802
  10. FOLINIC ACID [Suspect]
     Active Substance: LEUCOVORIN
     Indication: COLORECTAL CANCER METASTATIC
     Dosage: 366 MG, UNK
     Route: 065
     Dates: start: 20180314
  11. SPIRONOLACTON-RATIOPHARM [Concomitant]
     Indication: PROPHYLAXIS
     Dosage: 50 MG, QD
     Route: 048
     Dates: start: 201802
  12. DOXYCYCLIN-RATIOPHARM [Concomitant]
     Indication: RASH
     Dosage: 200 MG, BID?100-200 MG, BID
     Route: 048
     Dates: start: 20180312
  13. MOVICOL [Concomitant]
     Active Substance: POLYETHYLENE GLYCOL 3350\POTASSIUM CHLORIDE\SODIUM BICARBONATE\SODIUM CHLORIDE
     Indication: RECTAL CANCER
     Dosage: 1 UNK, AS NECESSARY
     Route: 048
     Dates: start: 201802
  14. PANITUMUMAB [Suspect]
     Active Substance: PANITUMUMAB
     Indication: PRODUCT USED FOR UNKNOWN INDICATION
     Dosage: 424 MG, UNK
     Route: 042
  15. IRINOTECAN [Suspect]
     Active Substance: IRINOTECAN
     Indication: COLORECTAL CANCER METASTATIC
     Dosage: 329 MG, UNK
     Route: 065
     Dates: start: 20180314
  16. CARMEN [Concomitant]
     Active Substance: LERCANIDIPINE
     Indication: HYPERTENSION
     Dosage: 10 MG, QD
     Route: 048
     Dates: start: 201802
  17. FLUOROURACIL. [Suspect]
     Active Substance: FLUOROURACIL
     Indication: PRODUCT USED FOR UNKNOWN INDICATION
     Dosage: 130 MG, UNK
     Route: 040
  18. BELOC-ZOK COMP [Concomitant]
     Active Substance: HYDROCHLOROTHIAZIDE\METOPROLOL SUCCINATE
     Indication: HYPERTENSION
     Dosage: 47.5 MG, BID
     Route: 048
     Dates: start: 201802
  19. TOREM [Concomitant]
     Active Substance: TORSEMIDE
     Indication: HYPERTENSION
     Dosage: 10 MG, QD
     Route: 048
     Dates: start: 201802
  20. CARMEN [Concomitant]
     Active Substance: LERCANIDIPINE
     Indication: HYPERTENSION
     Dosage: 10 MG, QD
     Route: 048
     Dates: start: 201802
  21. CLEXANE DUO [Concomitant]
     Dosage: 40 MG, QD
     Route: 058
     Dates: start: 201801, end: 20180313

REACTIONS (2)
  - Drug eruption [Recovering/Resolving]
  - Leukopenia [Recovered/Resolved]

NARRATIVE: CASE EVENT DATE: 20180327
